FAERS Safety Report 8775412 (Version 9)
Quarter: 2014Q3

REPORT INFORMATION
  Report Type: Report from Study
  Country: JP (occurrence: JP)
  Receive Date: 20120910
  Receipt Date: 20140710
  Transmission Date: 20150326
  Serious: Yes (Hospitalization, Other)
  Sender: FDA-Public Use
  Company Number: JP-VERTEX PHARMACEUTICAL INC.-AE-2012-010915

PATIENT
  Age: 61 Year
  Sex: Male

DRUGS (21)
  1. PEGINTRON [Suspect]
     Active Substance: PEGINTERFERON ALFA-2B
     Indication: CHRONIC HEPATITIS C
     Dosage: 1.5 ?G/KG, QW
     Route: 058
     Dates: start: 20120530, end: 20120613
  2. REBETOL [Suspect]
     Active Substance: RIBAVIRIN
     Dosage: 200 MG, QD
     Route: 048
     Dates: start: 20120614, end: 20120718
  3. FUROSEMIDE. [Suspect]
     Active Substance: FUROSEMIDE
     Indication: ADVERSE EVENT
     Dosage: 10 MG, QD
     Route: 048
     Dates: start: 20120721, end: 20120808
  4. ALDACTONE [Suspect]
     Active Substance: SPIRONOLACTONE
     Indication: ADVERSE EVENT
     Dosage: 12.5 MG, QD
     Route: 048
     Dates: start: 20120721, end: 20120725
  5. FLUID REPLACEMENT [Suspect]
     Active Substance: UNSPECIFIED INGREDIENT
     Indication: ADVERSE EVENT
     Route: 065
  6. JUZENTAIHOTO [Concomitant]
     Indication: PRODUCT USED FOR UNKNOWN INDICATION
     Dosage: 7.5 G, QD
     Route: 048
     Dates: end: 20120719
  7. FERRUM [Concomitant]
     Active Substance: FERROUS FUMARATE
     Indication: PRODUCT USED FOR UNKNOWN INDICATION
     Dosage: 100 MG, QD
     Route: 048
     Dates: end: 20120719
  8. MIRCERA [Concomitant]
     Active Substance: PEGZEREPOETIN ALFA
     Indication: PRODUCT USED FOR UNKNOWN INDICATION
     Dosage: 100 ?G, QD
     Route: 058
     Dates: start: 20120526, end: 20120526
  9. GLYCYRON [Concomitant]
     Active Substance: AMMONIUM GLYCYRRHIZATE\GLYCINE\METHIONINE
     Indication: PRODUCT USED FOR UNKNOWN INDICATION
     Dosage: 6 DF, QD
     Route: 048
     Dates: end: 20120719
  10. PEGINTRON [Suspect]
     Active Substance: PEGINTERFERON ALFA-2B
     Dosage: 1 ?G/KG, QW
     Route: 058
     Dates: start: 20120621, end: 20120628
  11. PARIET [Concomitant]
     Active Substance: RABEPRAZOLE SODIUM
     Indication: PRODUCT USED FOR UNKNOWN INDICATION
     Dosage: 10 MG, QD
     Route: 048
     Dates: start: 20120725
  12. TELAPREVIR [Suspect]
     Active Substance: TELAPREVIR
     Indication: CHRONIC HEPATITIS C
     Dosage: 1500 MG, QD
     Route: 048
     Dates: start: 20120530, end: 20120719
  13. REBETOL [Suspect]
     Active Substance: RIBAVIRIN
     Indication: CHRONIC HEPATITIS C
     Dosage: 400 MG, QD
     Route: 048
     Dates: start: 20120530, end: 20120613
  14. MIRCERA [Concomitant]
     Active Substance: PEGZEREPOETIN ALFA
     Dosage: 100 ?G, QD
     Route: 058
     Dates: start: 20120614, end: 20120614
  15. NOVOLIN R [Concomitant]
     Active Substance: INSULIN HUMAN
     Indication: PRODUCT USED FOR UNKNOWN INDICATION
     Dosage: 22 U, QD
     Route: 058
     Dates: start: 20120601
  16. ALOSITOL [Suspect]
     Active Substance: ALLOPURINOL
     Indication: ADVERSE EVENT
     Dosage: 200 MG, QD
     Route: 048
     Dates: start: 20120602, end: 20120719
  17. URSO [Concomitant]
     Active Substance: URSODIOL
     Indication: PRODUCT USED FOR UNKNOWN INDICATION
     Dosage: 600 MG, QD
     Route: 048
     Dates: end: 20120719
  18. FOSAMAX [Concomitant]
     Active Substance: ALENDRONATE SODIUM
     Indication: PRODUCT USED FOR UNKNOWN INDICATION
     Dosage: 35 MG, QW
     Route: 048
     Dates: start: 20120725
  19. PEGINTRON [Suspect]
     Active Substance: PEGINTERFERON ALFA-2B
     Dosage: 1.5 ?G/KG, QW
     Route: 058
     Dates: start: 20120705, end: 20120712
  20. ALDACTONE [Suspect]
     Active Substance: SPIRONOLACTONE
     Dosage: 25 MG, QD
     Route: 048
     Dates: start: 20120726, end: 20120808
  21. BAKTAR [Concomitant]
     Active Substance: SULFAMETHOXAZOLE\TRIMETHOPRIM
     Indication: PRODUCT USED FOR UNKNOWN INDICATION
     Dosage: 1 DF, QD
     Route: 048
     Dates: start: 20120725

REACTIONS (3)
  - Toxic epidermal necrolysis [Recovered/Resolved]
  - Azotaemia [Recovering/Resolving]
  - Eosinophil count increased [Recovered/Resolved]

NARRATIVE: CASE EVENT DATE: 20120628
